FAERS Safety Report 8439064-7 (Version None)
Quarter: 2012Q2

REPORT INFORMATION
  Report Type: 
  Country: None (occurrence: None)
  Receive Date: 20120608
  Receipt Date: 20120530
  Transmission Date: 20120825
  Serious: Yes (Hospitalization)
  Sender: FDA-Public Use
  Company Number: 2012131117

PATIENT
  Age: 40 Year
  Sex: Male

DRUGS (5)
  1. FRAGMIN [Suspect]
     Dosage: SEE IMAGE, INTRAVENOUS
     Route: 042
     Dates: start: 20110801
  2. FRAGMIN [Suspect]
     Dosage: SEE IMAGE, INTRAVENOUS
     Route: 042
     Dates: start: 20110401
  3. FRAGMIN [Suspect]
     Dosage: SEE IMAGE, INTRAVENOUS
     Route: 042
     Dates: start: 20101201
  4. FRAGMIN [Suspect]
     Dosage: SEE IMAGE, INTRAVENOUS
     Route: 042
     Dates: start: 20091001
  5. FRAGMIN [Suspect]
     Dosage: SEE IMAGE, INTRAVENOUS
     Route: 042
     Dates: start: 20100301

REACTIONS (12)
  - PLATELET COUNT DECREASED [None]
  - TRAUMATIC HAEMATOMA [None]
  - HAEMORRHAGE [None]
  - GINGIVAL BLEEDING [None]
  - OEDEMA PERIPHERAL [None]
  - STAB WOUND [None]
  - HAEMATEMESIS [None]
  - COMPARTMENT SYNDROME [None]
  - ACTIVATED PARTIAL THROMBOPLASTIN TIME PROLONGED [None]
  - INTENTIONAL OVERDOSE [None]
  - RED BLOOD CELL COUNT DECREASED [None]
  - FALL [None]
